FAERS Safety Report 9836053 (Version 1)
Quarter: 2014Q1

REPORT INFORMATION
  Report Type: Spontaneous
  Country: FR (occurrence: FR)
  Receive Date: 20140122
  Receipt Date: 20140122
  Transmission Date: 20141002
  Serious: Yes (Life-Threatening, Hospitalization)
  Sender: FDA-Public Use
  Company Number: FR-ROCHE-1336159

PATIENT
  Age: 68 Year
  Sex: Male

DRUGS (5)
  1. CELLCEPT [Suspect]
     Indication: PROPHYLAXIS AGAINST TRANSPLANT REJECTION
     Route: 048
     Dates: start: 20121208, end: 20130913
  2. NEORAL [Suspect]
     Indication: PROPHYLAXIS AGAINST TRANSPLANT REJECTION
     Route: 048
     Dates: start: 20121208, end: 20130720
  3. NEORAL [Suspect]
     Route: 048
     Dates: start: 20130721, end: 20130927
  4. SOLUPRED (FRANCE) [Concomitant]
     Route: 048
     Dates: start: 2012, end: 201302
  5. SOLUPRED (FRANCE) [Concomitant]
     Route: 048
     Dates: start: 201302

REACTIONS (1)
  - Renal neoplasm [Recovered/Resolved with Sequelae]
